FAERS Safety Report 11588324 (Version 1)
Quarter: 2015Q4

REPORT INFORMATION
  Report Type: Spontaneous
  Country: US (occurrence: None)
  Receive Date: 20151001
  Receipt Date: 20151001
  Transmission Date: 20160304
  Serious: No
  Sender: FDA-Public Use
  Company Number: None

PATIENT
  Age: 41 Year
  Sex: Female
  Weight: 68.04 kg

DRUGS (4)
  1. DEPLIN [Concomitant]
     Active Substance: LEVOMEFOLATE CALCIUM
  2. TOPAMAX [Concomitant]
     Active Substance: TOPIRAMATE
  3. XARELTO [Suspect]
     Active Substance: RIVAROXABAN
     Dosage: 1 PILL ONCE DAILY TAKEN BY MOUTH
     Route: 048
  4. SYNTHROID [Concomitant]
     Active Substance: LEVOTHYROXINE SODIUM

REACTIONS (6)
  - Arthralgia [None]
  - Myalgia [None]
  - Impaired work ability [None]
  - Quality of life decreased [None]
  - Middle insomnia [None]
  - Influenza like illness [None]

NARRATIVE: CASE EVENT DATE: 20150930
